FAERS Safety Report 6837409-2 (Version None)
Quarter: 2010Q3

REPORT INFORMATION
  Report Type: 
  Country: None (occurrence: None)
  Receive Date: 20100713
  Receipt Date: 20070513
  Transmission Date: 20110219
  Serious: No
  Sender: FDA-Public Use
  Company Number: US-PFIZER INC-2007038712

PATIENT
  Age: 47 Year
  Sex: Male
  Weight: 84.09 kg

DRUGS (4)
  1. CHANTIX [Suspect]
     Indication: SMOKING CESSATION THERAPY
     Dates: start: 20070501
  2. PREDNISONE [Concomitant]
     Indication: RASH
  3. PROTONIX [Concomitant]
     Indication: GASTRIC DISORDER
  4. ALLEGRA [Concomitant]

REACTIONS (4)
  - MUSCLE SPASMS [None]
  - MUSCULOSKELETAL STIFFNESS [None]
  - MYALGIA [None]
  - POOR QUALITY SLEEP [None]
